FAERS Safety Report 12114841 (Version 1)
Quarter: 2016Q1

REPORT INFORMATION
  Report Type: Spontaneous
  Country: KZ (occurrence: KZ)
  Receive Date: 20160225
  Receipt Date: 20160225
  Transmission Date: 20160526
  Serious: Yes (Death)
  Sender: FDA-Public Use
  Company Number: KZ-BAYER-2016-036322

PATIENT
  Age: 69 Year
  Sex: Male

DRUGS (1)
  1. STIVARGA [Suspect]
     Active Substance: REGORAFENIB
     Indication: COLORECTAL CANCER METASTATIC
     Dosage: 160 MG, QD (DAILY DOSE)
     Route: 048
     Dates: start: 20160104, end: 20160126

REACTIONS (1)
  - Death [Fatal]

NARRATIVE: CASE EVENT DATE: 20160126
